FAERS Safety Report 25911993 (Version 1)
Quarter: 2025Q4

REPORT INFORMATION
  Report Type: Spontaneous
  Country: US (occurrence: US)
  Receive Date: 20251013
  Receipt Date: 20251013
  Transmission Date: 20260117
  Serious: No
  Sender: RANBAXY
  Company Number: US-SUN PHARMACEUTICAL INDUSTRIES LTD-2025R1-514196

PATIENT
  Age: 55 Year
  Sex: Male
  Weight: 81.633 kg

DRUGS (3)
  1. WINLEVI [Suspect]
     Active Substance: CLASCOTERONE
     Indication: Rosacea
     Dosage: UNK
     Route: 065
  2. WINLEVI [Suspect]
     Active Substance: CLASCOTERONE
     Indication: Acne
  3. Acutane [Concomitant]
     Indication: Acne
     Dosage: UNK
     Route: 065

REACTIONS (3)
  - Product storage error [Unknown]
  - Expired product administered [Unknown]
  - Therapy cessation [Unknown]
